FAERS Safety Report 8087875-2 (Version None)
Quarter: 2012Q1

REPORT INFORMATION
  Report Type: 
  Country: None (occurrence: None)
  Receive Date: 20120128
  Receipt Date: 20110411
  Transmission Date: 20120608
  Serious: No
  Sender: FDA-Public Use
  Company Number: US-ABBOTT-11P-163-0718058-00

PATIENT
  Age: 40 Year
  Sex: Female

DRUGS (4)
  1. NEXIUM [Concomitant]
     Indication: GASTROOESOPHAGEAL REFLUX DISEASE
  2. HUMIRA [Suspect]
     Dates: start: 20110201
  3. HUMIRA [Suspect]
     Indication: CROHN'S DISEASE
     Dates: end: 20110201
  4. ENTOCORT EC [Concomitant]
     Indication: CROHN'S DISEASE

REACTIONS (1)
  - DRUG INEFFECTIVE [None]
